FAERS Safety Report 13667693 (Version 1)
Quarter: 2017Q2

REPORT INFORMATION
  Report Type: Spontaneous
  Country: US (occurrence: US)
  Receive Date: 20170619
  Receipt Date: 20170619
  Transmission Date: 20170830
  Serious: No
  Sender: FDA-Public Use
  Company Number: None

PATIENT
  Age: 68 Year
  Sex: Male

DRUGS (1)
  1. HARVONI [Suspect]
     Active Substance: LEDIPASVIR\SOFOSBUVIR

REACTIONS (6)
  - Dyspnoea [None]
  - Pruritus [None]
  - Lip swelling [None]
  - Swollen tongue [None]
  - Drug dose omission [None]
  - Urticaria [None]

NARRATIVE: CASE EVENT DATE: 20170619
